FAERS Safety Report 4532205-3 (Version None)
Quarter: 2004Q4

REPORT INFORMATION
  Report Type: 
  Country: None (occurrence: None)
  Receive Date: 20041217
  Receipt Date: 20041206
  Transmission Date: 20050328
  Serious: Yes (Death)
  Sender: FDA-Public Use
  Company Number: 00/00416-FRA

PATIENT
  Age: 63 Year
  Sex: Male
  Weight: 61 kg

DRUGS (7)
  1. FLUDARABINE + CYCLOPHOSPHAMIDE (FLUDARABINE PHOSPHATE) [Suspect]
     Indication: CHRONIC LYMPHOCYTIC LEUKAEMIA
     Dosage: RESPECTIVELY 30 MG/M2 AND 200MG, ORAL
     Route: 048
     Dates: start: 20000321, end: 20000715
  2. GLUCOSE [Concomitant]
  3. PRO-DAFALGAN (PROPACETAMOL HYDROCHLORIDE) [Concomitant]
  4. SOLUPSAN (CARBASALATE CALCIUM) [Concomitant]
  5. SOTALOL HCL [Concomitant]
  6. ALDALIX [Concomitant]
  7. LANSOPRAZOLE [Concomitant]

REACTIONS (9)
  - ASTHENIA [None]
  - BRONCHITIS [None]
  - CARDIO-RESPIRATORY ARREST [None]
  - DEPRESSED LEVEL OF CONSCIOUSNESS [None]
  - DIARRHOEA [None]
  - HAEMOPTYSIS [None]
  - NEUTROPENIA [None]
  - PULMONARY EMBOLISM [None]
  - PYREXIA [None]
